FAERS Safety Report 9922283 (Version 2)
Quarter: 2014Q1

REPORT INFORMATION
  Report Type: Spontaneous
  Country: US (occurrence: US)
  Receive Date: 20140225
  Receipt Date: 20140311
  Transmission Date: 20141002
  Serious: Yes (Hospitalization)
  Sender: FDA-Public Use
  Company Number: US-GLAXOSMITHKLINE-A1062372A

PATIENT
  Sex: Female

DRUGS (3)
  1. TYKERB [Suspect]
     Indication: GALLBLADDER CANCER METASTATIC
     Dosage: 500MG PER DAY
     Route: 065
     Dates: start: 201312
  2. 5-FLUOROURACIL [Suspect]
     Indication: GALLBLADDER CANCER METASTATIC
     Route: 065
     Dates: start: 201306
  3. OXALIPLATIN [Suspect]
     Indication: GALLBLADDER CANCER METASTATIC
     Route: 065
     Dates: start: 201306, end: 201312

REACTIONS (3)
  - Off label use [Unknown]
  - Toxicity to various agents [Unknown]
  - Adverse drug reaction [Not Recovered/Not Resolved]
